FAERS Safety Report 7270453-2 (Version None)
Quarter: 2011Q1

REPORT INFORMATION
  Report Type: 
  Country: None (occurrence: None)
  Receive Date: 20110202
  Receipt Date: 20110125
  Transmission Date: 20110831
  Serious: Yes (Other)
  Sender: FDA-Public Use
  Company Number: US-US-EMD SERONO, INC.-7039008

PATIENT
  Sex: Male

DRUGS (1)
  1. REBIF [Suspect]
     Indication: PRODUCT USED FOR UNKNOWN INDICATION
     Route: 058
     Dates: start: 20101221

REACTIONS (5)
  - NIGHT SWEATS [None]
  - INJECTION SITE REACTION [None]
  - DEPRESSION [None]
  - ORAL HERPES [None]
  - SELF-INJURIOUS IDEATION [None]
